FAERS Safety Report 25104053 (Version 2)
Quarter: 2025Q1

REPORT INFORMATION
  Report Type: Report from Study
  Country: US (occurrence: US)
  Receive Date: 20250321
  Receipt Date: 20250325
  Transmission Date: 20250409
  Serious: No
  Sender: BRISTOL-MYERS SQUIBB COMPANY
  Company Number: US-BRISTOL-MYERS SQUIBB COMPANY-2025-042497

PATIENT
  Age: 71 Year
  Sex: Female

DRUGS (1)
  1. ORENCIA [Suspect]
     Active Substance: ABATACEPT
     Indication: Psoriatic arthropathy
     Route: 042
     Dates: start: 20250220

REACTIONS (11)
  - Dizziness [Unknown]
  - Pain [Unknown]
  - Tenderness [Unknown]
  - Headache [Unknown]
  - Dry skin [Unknown]
  - Dry mouth [Unknown]
  - Erythema [Unknown]
  - Cough [Unknown]
  - Dyspnoea [Unknown]
  - Swelling face [Unknown]
  - Drug ineffective [Unknown]

NARRATIVE: CASE EVENT DATE: 20250220
